FAERS Safety Report 22222708 (Version 5)
Quarter: 2023Q4

REPORT INFORMATION
  Report Type: Spontaneous
  Country: JP (occurrence: JP)
  Receive Date: 20230418
  Receipt Date: 20231208
  Transmission Date: 20240110
  Serious: Yes (Hospitalization, Other)
  Sender: FDA-Public Use
  Company Number: JP-ASTELLAS-2023JP004691

PATIENT
  Age: 56 Year
  Sex: Male
  Weight: 50 kg

DRUGS (47)
  1. XOSPATA [Suspect]
     Active Substance: GILTERITINIB
     Indication: Acute myeloid leukaemia
     Route: 048
     Dates: start: 202111, end: 20220503
  2. XOSPATA [Suspect]
     Active Substance: GILTERITINIB
     Route: 048
     Dates: start: 20230308, end: 20230324
  3. PROGRAF [Suspect]
     Active Substance: TACROLIMUS
     Indication: Graft versus host disease in liver
     Route: 048
     Dates: start: 20220906
  4. PROGRAF [Suspect]
     Active Substance: TACROLIMUS
     Indication: Graft versus host disease in skin
     Route: 048
     Dates: start: 20220913
  5. PROGRAF [Suspect]
     Active Substance: TACROLIMUS
     Route: 048
     Dates: start: 20220920
  6. PROGRAF [Suspect]
     Active Substance: TACROLIMUS
     Dosage: 1.0 MG, UNKNOWN FREQ.
     Route: 048
     Dates: start: 20220927
  7. PROGRAF [Suspect]
     Active Substance: TACROLIMUS
     Dosage: 0.8 MG, UNKNOWN FREQ.
     Route: 048
     Dates: start: 20221004
  8. PROGRAF [Suspect]
     Active Substance: TACROLIMUS
     Dosage: 1.0 MG, UNKNOWN FREQ.
     Route: 048
     Dates: start: 20221101
  9. PROGRAF [Suspect]
     Active Substance: TACROLIMUS
     Dosage: 0.8 MG, UNKNOWN FREQ.
     Route: 048
     Dates: start: 20221122
  10. PROGRAF [Suspect]
     Active Substance: TACROLIMUS
     Dosage: 0.6 MG, UNKNOWN FREQ.
     Route: 048
     Dates: start: 20221227
  11. PROGRAF [Suspect]
     Active Substance: TACROLIMUS
     Dosage: 0.4 MG, UNKNOWN FREQ.
     Route: 048
     Dates: start: 20230124
  12. PROGRAF [Suspect]
     Active Substance: TACROLIMUS
     Dosage: 0.2 MG, ONCE DAILY
     Route: 048
     Dates: start: 20230207
  13. AZACITIDINE [Concomitant]
     Active Substance: AZACITIDINE
     Indication: Myelodysplastic syndrome
     Dosage: UNK UNK, UNKNOWN FREQ.
     Route: 065
     Dates: start: 20211101
  14. IDAMYCIN [Concomitant]
     Active Substance: IDARUBICIN HYDROCHLORIDE
     Indication: Acute myeloid leukaemia recurrent
     Dosage: UNK UNK, UNKNOWN FREQ.
     Route: 065
     Dates: start: 202205
  15. CYTARABINE [Concomitant]
     Active Substance: CYTARABINE
     Indication: Acute myeloid leukaemia recurrent
     Dosage: UNK UNK, UNKNOWN FREQ.
     Route: 065
     Dates: start: 202205
  16. BUSULFAN [Concomitant]
     Active Substance: BUSULFAN
     Indication: Acute myeloid leukaemia recurrent
     Dosage: UNK UNK, UNKNOWN FREQ.
     Route: 042
     Dates: start: 20220609
  17. CYCLOPHOSPHAMIDE [Concomitant]
     Active Substance: CYCLOPHOSPHAMIDE
     Indication: Acute myeloid leukaemia recurrent
     Dosage: UNK UNK, UNKNOWN FREQ.
     Route: 065
     Dates: start: 20220609
  18. MEDROL [Concomitant]
     Active Substance: METHYLPREDNISOLONE
     Indication: Graft versus host disease in liver
     Route: 048
     Dates: start: 20220718
  19. MEDROL [Concomitant]
     Active Substance: METHYLPREDNISOLONE
     Indication: Graft versus host disease in skin
     Route: 048
     Dates: start: 20220723
  20. MEDROL [Concomitant]
     Active Substance: METHYLPREDNISOLONE
     Indication: Chronic graft versus host disease in intestine
     Route: 048
     Dates: start: 20220809
  21. MEDROL [Concomitant]
     Active Substance: METHYLPREDNISOLONE
     Route: 048
     Dates: start: 20220816
  22. MEDROL [Concomitant]
     Active Substance: METHYLPREDNISOLONE
     Route: 048
     Dates: start: 20220830
  23. MEDROL [Concomitant]
     Active Substance: METHYLPREDNISOLONE
     Route: 048
     Dates: start: 20220906
  24. MEDROL [Concomitant]
     Active Substance: METHYLPREDNISOLONE
     Route: 048
     Dates: start: 20220913
  25. MEDROL [Concomitant]
     Active Substance: METHYLPREDNISOLONE
     Route: 048
     Dates: start: 20220920
  26. MEDROL [Concomitant]
     Active Substance: METHYLPREDNISOLONE
     Route: 048
     Dates: start: 20220927
  27. MEDROL [Concomitant]
     Active Substance: METHYLPREDNISOLONE
     Route: 048
     Dates: start: 20221004
  28. MEDROL [Concomitant]
     Active Substance: METHYLPREDNISOLONE
     Route: 048
     Dates: start: 20221101
  29. MEDROL [Concomitant]
     Active Substance: METHYLPREDNISOLONE
     Route: 048
     Dates: start: 20221122
  30. MEDROL [Concomitant]
     Active Substance: METHYLPREDNISOLONE
     Route: 048
     Dates: start: 20221227
  31. MEDROL [Concomitant]
     Active Substance: METHYLPREDNISOLONE
     Route: 048
     Dates: start: 20230124
  32. MEDROL [Concomitant]
     Active Substance: METHYLPREDNISOLONE
     Route: 048
     Dates: start: 20230207
  33. MEDROL [Concomitant]
     Active Substance: METHYLPREDNISOLONE
     Route: 048
     Dates: start: 20230425
  34. MEDROL [Concomitant]
     Active Substance: METHYLPREDNISOLONE
     Route: 048
     Dates: start: 20230509
  35. MEDROL [Concomitant]
     Active Substance: METHYLPREDNISOLONE
     Route: 048
     Dates: start: 20230523
  36. MEDROL [Concomitant]
     Active Substance: METHYLPREDNISOLONE
     Route: 048
     Dates: start: 20230530
  37. PIPERACILLIN SODIUM\TAZOBACTAM SODIUM [Concomitant]
     Active Substance: PIPERACILLIN SODIUM\TAZOBACTAM SODIUM
     Indication: Gastroenteritis
     Dates: start: 20230409, end: 202304
  38. LEVOFLOXACIN HEMIHYDRATE [Concomitant]
     Active Substance: LEVOFLOXACIN
     Indication: Gastroenteritis
     Dosage: UNK UNK, UNKNOWN FREQ.
     Route: 048
     Dates: start: 20230413
  39. LEVOFLOXACIN HEMIHYDRATE [Concomitant]
     Active Substance: LEVOFLOXACIN
     Dosage: UNK UNK, UNKNOWN FREQ.
     Route: 048
     Dates: start: 20230725
  40. PENTAMIDINE [Concomitant]
     Active Substance: PENTAMIDINE
     Indication: Product used for unknown indication
     Dosage: UNK UNK, UNKNOWN FREQ.
     Route: 050
     Dates: start: 20230502
  41. PENTAMIDINE [Concomitant]
     Active Substance: PENTAMIDINE
     Dosage: UNK UNK, UNKNOWN FREQ., FOR 4 WEEKS
     Route: 050
     Dates: start: 20230523
  42. ELTROMBOPAG OLAMINE [Concomitant]
     Active Substance: ELTROMBOPAG OLAMINE
     Indication: Immune thrombocytopenia
     Route: 048
  43. NOXAFIL [Concomitant]
     Active Substance: POSACONAZOLE
     Indication: Prophylaxis
     Route: 048
  44. ACYCLOVIR [Concomitant]
     Active Substance: ACYCLOVIR
     Indication: Prophylaxis
     Route: 048
  45. VONOPRAZAN FUMARATE [Concomitant]
     Active Substance: VONOPRAZAN FUMARATE
     Indication: Prophylaxis against gastrointestinal ulcer
     Route: 048
  46. URSO [Concomitant]
     Active Substance: URSODIOL
     Indication: Prophylaxis
     Route: 048
  47. SITAGLIPTIN [Concomitant]
     Active Substance: SITAGLIPTIN
     Indication: Hyperglycaemia
     Route: 048

REACTIONS (4)
  - Coronavirus pneumonia [Recovered/Resolved]
  - Chronic graft versus host disease in intestine [Recovered/Resolved]
  - Gastroenteritis [Recovered/Resolved]
  - Arthritis bacterial [Recovering/Resolving]

NARRATIVE: CASE EVENT DATE: 20230323
